FAERS Safety Report 11743222 (Version 1)
Quarter: 2015Q4

REPORT INFORMATION
  Report Type: Report from Study
  Country: SA (occurrence: SA)
  Receive Date: 20151116
  Receipt Date: 20151116
  Transmission Date: 20160304
  Serious: Yes (Other)
  Sender: FDA-Public Use
  Company Number: SA-BAXTER-2015BAX061821

PATIENT

DRUGS (5)
  1. SODIUM CHLORIDE 0.9% SOLU. FOR  I.V. INFU. IN VIAFLEX [Suspect]
     Active Substance: SODIUM CHLORIDE
     Indication: FLUID REPLACEMENT
     Route: 042
  2. ALBUMIN [Suspect]
     Active Substance: ALBUMIN (HUMAN)
     Indication: FLUID REPLACEMENT
     Route: 065
  3. ALBUMIN [Suspect]
     Active Substance: ALBUMIN (HUMAN)
     Route: 065
  4. SODIUM CHLORIDE 0.45% SOLU. FOR  I.V. INFU. IN VIAFLEX [Concomitant]
     Active Substance: SODIUM CHLORIDE
     Indication: FLUID REPLACEMENT
     Route: 042
  5. LACTATED RINGERS [Concomitant]
     Active Substance: CALCIUM CHLORIDE\POTASSIUM CHLORIDE\SODIUM CHLORIDE\SODIUM LACTATE
     Indication: FLUID REPLACEMENT
     Route: 042

REACTIONS (1)
  - Acute kidney injury [Unknown]
